FAERS Safety Report 5775695-0 (Version None)
Quarter: 2008Q2

REPORT INFORMATION
  Report Type: 
  Country: None (occurrence: None)
  Receive Date: 20080617
  Receipt Date: 20080605
  Transmission Date: 20081010
  Serious: Yes (Death)
  Sender: FDA-Public Use
  Company Number: GB-PFIZER INC-2006136819

PATIENT
  Sex: Male
  Weight: 120 kg

DRUGS (1)
  1. SU-011,248 [Suspect]
     Indication: RENAL CELL CARCINOMA
     Route: 048
     Dates: start: 20060803, end: 20061011

REACTIONS (1)
  - CARDIAC ARREST [None]
